FAERS Safety Report 11291402 (Version 1)
Quarter: 2015Q3

REPORT INFORMATION
  Report Type: Report from Study
  Country: PH (occurrence: PH)
  Receive Date: 20150722
  Receipt Date: 20150722
  Transmission Date: 20151125
  Serious: Yes (Hospitalization)
  Sender: FDA-Public Use
  Company Number: PH-BRISTOL-MYERS SQUIBB COMPANY-BMS-2015-047225

PATIENT
  Age: 24 Year
  Sex: Female
  Weight: 40 kg

DRUGS (1)
  1. ARIPIPRAZOLE. [Suspect]
     Active Substance: ARIPIPRAZOLE
     Indication: RESTLESSNESS
     Dosage: 10 MG, UNK
     Route: 030
     Dates: start: 20150511, end: 20150511

REACTIONS (3)
  - Off label use [Unknown]
  - Restlessness [Recovered/Resolved]
  - Screaming [Recovered/Resolved]

NARRATIVE: CASE EVENT DATE: 20150511
